FAERS Safety Report 7205409-9 (Version None)
Quarter: 2010Q4

REPORT INFORMATION
  Report Type: 
  Country: None (occurrence: None)
  Receive Date: 20101231
  Receipt Date: 20101221
  Transmission Date: 20110411
  Serious: Yes (Disabling, Other)
  Sender: FDA-Public Use
  Company Number: JP-PFIZER INC-2010135506

PATIENT
  Age: 67 Year
  Sex: Female

DRUGS (3)
  1. AZULFIDINE [Suspect]
     Dosage: 500 MG, 2X/DAY
     Route: 048
     Dates: start: 20100817, end: 20101023
  2. EVOXAC [Concomitant]
     Indication: SJOGREN'S SYNDROME
     Dosage: 30 MG, 2X/DAY
     Route: 048
     Dates: end: 20101023
  3. BISOLVON [Concomitant]
     Indication: SJOGREN'S SYNDROME
     Dosage: 4 MG, 3X/DAY
     Route: 048
     Dates: end: 20101023

REACTIONS (6)
  - APLASTIC ANAEMIA [None]
  - BLOOD BILIRUBIN INCREASED [None]
  - INFLAMMATION [None]
  - LOSS OF CONSCIOUSNESS [None]
  - PANCYTOPENIA [None]
  - SEPSIS [None]
